FAERS Safety Report 23276299 (Version 1)
Quarter: 2023Q4

REPORT INFORMATION
  Report Type: Spontaneous
  Country: CZ (occurrence: CZ)
  Receive Date: 20231208
  Receipt Date: 20231208
  Transmission Date: 20240110
  Serious: Yes (Life-Threatening, Hospitalization, Disabling, Other)
  Sender: FDA-Public Use
  Company Number: None

PATIENT
  Age: 75 Year
  Sex: Male
  Weight: 67 kg

DRUGS (15)
  1. YERVOY [Suspect]
     Active Substance: IPILIMUMAB
     Indication: Renal cancer
     Dosage: NIVOLUMAB 3MG/KG + IPILIMUMAB 1MG/KG PLANNED FOR 21 DAYS, ONLY THE FIRST CYCLE WAS ADMINISTERED.
     Route: 042
     Dates: start: 20231011, end: 20231011
  2. OPDIVO [Suspect]
     Active Substance: NIVOLUMAB
     Indication: Renal cancer
     Dosage: NIVOLUMAB 3MG/KG + IPILIMUMAB 1MG/KG PLANNED FOR 21 DAYS, ONLY THE FIRST CYCLE WAS ADMINISTERED.
     Route: 042
     Dates: start: 20231011, end: 20231011
  3. AMLODIPINE BESYLATE\LISINOPRIL [Concomitant]
     Active Substance: AMLODIPINE BESYLATE\LISINOPRIL
     Indication: Product used for unknown indication
     Dosage: 10MG + 5MG?1-0-0
  4. RIVOTRIL [Concomitant]
     Active Substance: CLONAZEPAM
     Indication: Product used for unknown indication
     Dosage: 5 DROPS FOR THE NIGHT
  5. ALFUZOSIN [Concomitant]
     Active Substance: ALFUZOSIN
     Indication: Product used for unknown indication
     Dosage: 0-0-1
  6. ONDANSETRON [Concomitant]
     Active Substance: ONDANSETRON
     Indication: Nausea
  7. XGEVA [Concomitant]
     Active Substance: DENOSUMAB
     Indication: Product used for unknown indication
  8. MAGNEROT [MAGNESIUM OROTATE DIHYDRATE] [Concomitant]
     Indication: Product used for unknown indication
     Dosage: 0-0-1
  9. OMEPRAZOLE [Concomitant]
     Active Substance: OMEPRAZOLE
     Indication: Product used for unknown indication
     Dosage: 1-0-0
  10. NUTRIDRINK COMPACT [Concomitant]
     Indication: Product used for unknown indication
     Dosage: 1-2 TIMES A DAY, NUTRIDRINK VANILLA
  11. NUTRIDRINK COMPACT [Concomitant]
     Dosage: NUTRIDRINK COMPACT
  12. FERRETAB COMP. [Concomitant]
     Indication: Product used for unknown indication
     Dosage: 50MG + 0,5 MG?1-0-0
  13. GABAPENTIN [Concomitant]
     Active Substance: GABAPENTIN
     Indication: Product used for unknown indication
     Dosage: 1-0-1
  14. ZALDIAR [Concomitant]
     Active Substance: ACETAMINOPHEN\TRAMADOL HYDROCHLORIDE
     Indication: Pain
     Dosage: 37.5+325 MG 1-0-1?WHEN THE PAIN SCALE IS ABOVE 1
  15. OXYCONTIN [Concomitant]
     Active Substance: OXYCODONE HYDROCHLORIDE
     Indication: Product used for unknown indication
     Dosage: 3X1

REACTIONS (2)
  - Paraparesis [Not Recovered/Not Resolved]
  - Polyneuropathy [Not Recovered/Not Resolved]

NARRATIVE: CASE EVENT DATE: 20231017
